FAERS Safety Report 23259183 (Version 1)
Quarter: 2023Q4

REPORT INFORMATION
  Report Type: Spontaneous
  Country: KR (occurrence: None)
  Receive Date: 20231204
  Receipt Date: 20231204
  Transmission Date: 20240109
  Serious: Yes (Death)
  Sender: FDA-Public Use
  Company Number: 2023A272635

PATIENT
  Age: 22131 Day
  Sex: Male

DRUGS (2)
  1. TAGRISSO [Suspect]
     Active Substance: OSIMERTINIB
     Dosage: 14 TABLETS
     Route: 048
     Dates: start: 20230830
  2. TAGRISSO [Suspect]
     Active Substance: OSIMERTINIB
     Dosage: 28 TABLETS
     Route: 048
     Dates: start: 20230920

REACTIONS (1)
  - Lung neoplasm malignant [Fatal]

NARRATIVE: CASE EVENT DATE: 20231014
